FAERS Safety Report 9775741 (Version 2)
Quarter: 2014Q1

REPORT INFORMATION
  Report Type: Spontaneous
  Country: US (occurrence: US)
  Receive Date: 20131220
  Receipt Date: 20140117
  Transmission Date: 20141002
  Serious: Yes (Other)
  Sender: FDA-Public Use
  Company Number: US-BRISTOL-MYERS SQUIBB COMPANY-19899848

PATIENT
  Age: 12 Year
  Sex: Male
  Weight: 45.35 kg

DRUGS (4)
  1. ABILIFY TABS 2 MG [Suspect]
     Indication: AUTISM
     Route: 048
     Dates: start: 20131030, end: 20131104
  2. GUANFACINE [Concomitant]
  3. CLONAZEPAM [Concomitant]
  4. PREVACID [Concomitant]

REACTIONS (8)
  - Mania [Unknown]
  - Agitation [Unknown]
  - Hallucination [Unknown]
  - Affect lability [Unknown]
  - Fatigue [Unknown]
  - Oropharyngeal pain [Unknown]
  - Insomnia [Unknown]
  - Off label use [Unknown]
